FAERS Safety Report 11894155 (Version 4)
Quarter: 2016Q1

REPORT INFORMATION
  Report Type: Report from Study
  Country: US (occurrence: US)
  Receive Date: 20160107
  Receipt Date: 20160302
  Transmission Date: 20160526
  Serious: Yes (Other)
  Sender: FDA-Public Use
  Company Number: US-AMGEN-USASL2016000230

PATIENT
  Age: 78 Year
  Sex: Male

DRUGS (1)
  1. ENBREL [Suspect]
     Active Substance: ETANERCEPT
     Indication: RHEUMATOID ARTHRITIS
     Dosage: 50 MG, ONCE WEEKLY
     Route: 065
     Dates: start: 20151112

REACTIONS (7)
  - Accidental underdose [Unknown]
  - No therapeutic response [Unknown]
  - Activities of daily living impaired [Unknown]
  - Suicidal ideation [Unknown]
  - Pain [Unknown]
  - Arthralgia [Unknown]
  - Groin pain [Unknown]
